FAERS Safety Report 4988195-2 (Version None)
Quarter: 2006Q2

REPORT INFORMATION
  Report Type: 
  Country: None (occurrence: None)
  Receive Date: 20060425
  Receipt Date: 20060412
  Transmission Date: 20061013
  Serious: Yes (Other)
  Sender: FDA-Public Use
  Company Number: 2006051196

PATIENT
  Age: 55 Year
  Sex: Male

DRUGS (2)
  1. XALATAN [Suspect]
     Indication: GLAUCOMA
     Dates: start: 19980101
  2. TIMOLOL MALEATE [Concomitant]

REACTIONS (3)
  - DRUG INEFFECTIVE [None]
  - HYPERTONIA [None]
  - INTRAOCULAR PRESSURE INCREASED [None]
